FAERS Safety Report 5664154-1 (Version None)
Quarter: 2008Q1

REPORT INFORMATION
  Report Type: 
  Country: None (occurrence: None)
  Receive Date: 20080314
  Receipt Date: 20080314
  Transmission Date: 20080703
  Serious: Yes (Death)
  Sender: FDA-Public Use
  Company Number: None

PATIENT
  Age: 45 Year
  Sex: Female

DRUGS (3)
  1. HEPARIN [Suspect]
     Indication: INDWELLING CATHETER MANAGEMENT
     Dosage: TWICE A DAY INJ
     Dates: start: 20071220, end: 20080105
  2. PERCOCET [Concomitant]
  3. HEPARIN [Suspect]

REACTIONS (4)
  - FALL [None]
  - NAUSEA [None]
  - SUDDEN DEATH [None]
  - VOMITING [None]
